FAERS Safety Report 9174331 (Version 1)
Quarter: 2013Q1

REPORT INFORMATION
  Report Type: Report from Study
  Country: CA (occurrence: CA)
  Receive Date: 20130320
  Receipt Date: 20130320
  Transmission Date: 20140127
  Serious: Yes (Hospitalization, Other)
  Sender: FDA-Public Use
  Company Number: PHHY2009CA27080

PATIENT
  Age: 76 Year
  Sex: Female

DRUGS (3)
  1. CLOZARIL [Suspect]
     Indication: SCHIZOPHRENIA
     Dosage: 75 MG DAILY
     Route: 048
     Dates: start: 20080418
  2. ACTONEL [Concomitant]
     Dosage: 35 G, QW
  3. REMERON [Concomitant]
     Dosage: 60 MG, QHS
     Route: 048

REACTIONS (5)
  - Upper limb fracture [Recovering/Resolving]
  - Pelvic fracture [Recovering/Resolving]
  - Fall [Unknown]
  - White blood cell count increased [Unknown]
  - Neutrophil count increased [Unknown]
